FAERS Safety Report 21087484 (Version 1)
Quarter: 2022Q3

REPORT INFORMATION
  Report Type: Spontaneous
  Country: US (occurrence: None)
  Receive Date: 20220714
  Receipt Date: 20220714
  Transmission Date: 20221026
  Serious: No
  Sender: FDA-Public Use
  Company Number: None

PATIENT
  Age: 58 Year
  Sex: Female
  Weight: 75.6 kg

DRUGS (1)
  1. PAXLOVID [Suspect]
     Active Substance: NIRMATRELVIR\RITONAVIR
     Indication: COVID-19
     Dosage: FREQUENCY : TWICE A DAY;?
     Route: 048
     Dates: start: 20220702, end: 20220706

REACTIONS (5)
  - COVID-19 [None]
  - Pyrexia [None]
  - Pain [None]
  - Headache [None]
  - Paranasal sinus hyposecretion [None]

NARRATIVE: CASE EVENT DATE: 20220709
